FAERS Safety Report 7428002-1 (Version None)
Quarter: 2011Q2

REPORT INFORMATION
  Report Type: 
  Country: None (occurrence: None)
  Receive Date: 20110418
  Receipt Date: 20110418
  Transmission Date: 20111010
  Serious: No
  Sender: FDA-Public Use
  Company Number: None

PATIENT
  Sex: Female
  Weight: 84.369 kg

DRUGS (1)
  1. GLEEVEC [Suspect]
     Indication: NEPHROGENIC SYSTEMIC FIBROSIS
     Dosage: 400MG DAILY PO
     Route: 048
     Dates: start: 20100904, end: 20100929

REACTIONS (3)
  - NEPHROGENIC SYSTEMIC FIBROSIS [None]
  - NO THERAPEUTIC RESPONSE [None]
  - DEAFNESS NEUROSENSORY [None]
